FAERS Safety Report 15188549 (Version 4)
Quarter: 2019Q1

REPORT INFORMATION
  Report Type: Spontaneous
  Country: JP (occurrence: JP)
  Receive Date: 20180724
  Receipt Date: 20190321
  Transmission Date: 20190417
  Serious: Yes (Hospitalization, Other)
  Sender: FDA-Public Use
  Company Number: JP-EISAI MEDICAL RESEARCH-EC-2018-042884

PATIENT
  Sex: Male
  Weight: 69 kg

DRUGS (2)
  1. LENVIMA [Suspect]
     Active Substance: LENVATINIB
     Indication: HEPATOCELLULAR CARCINOMA
     Route: 048
     Dates: start: 20180703, end: 20180723
  2. LENVIMA [Suspect]
     Active Substance: LENVATINIB
     Dosage: DOSE AND FREQUENCY UNKNOWN
     Route: 048

REACTIONS (6)
  - Ammonia increased [Recovered/Resolved]
  - Platelet count decreased [Recovered/Resolved]
  - Jaundice cholestatic [Unknown]
  - Hyperglycaemia [Recovered/Resolved]
  - Haemobilia [Unknown]
  - Ascites [Unknown]

NARRATIVE: CASE EVENT DATE: 20180704
